FAERS Safety Report 25349112 (Version 2)
Quarter: 2025Q3

REPORT INFORMATION
  Report Type: Spontaneous
  Country: US (occurrence: US)
  Receive Date: 20250522
  Receipt Date: 20250710
  Transmission Date: 20251020
  Serious: No
  Sender: SANOFI AVENTIS
  Company Number: US-SA-2025SA145324

PATIENT
  Age: 23 Year
  Sex: Female
  Weight: 77.27 kg

DRUGS (7)
  1. DUPIXENT [Suspect]
     Active Substance: DUPILUMAB
     Indication: Dermatitis
     Dosage: 300 MG, QOW
     Route: 058
  2. DUPIXENT [Suspect]
     Active Substance: DUPILUMAB
     Indication: Dermatitis atopic
  3. DESONIDE [Concomitant]
     Active Substance: DESONIDE
  4. MUPIROCIN [Concomitant]
     Active Substance: MUPIROCIN
  5. CLOBETASOL PROPIONATE [Concomitant]
     Active Substance: CLOBETASOL PROPIONATE
  6. TACROLIMUS [Concomitant]
     Active Substance: TACROLIMUS
  7. HYDROXYZINE HYDROCHLORIDE [Concomitant]
     Active Substance: HYDROXYZINE HYDROCHLORIDE

REACTIONS (2)
  - Injection site haemorrhage [Unknown]
  - Product use in unapproved indication [Unknown]
